FAERS Safety Report 11681418 (Version 1)
Quarter: 2015Q4

REPORT INFORMATION
  Report Type: Spontaneous
  Country: US (occurrence: US)
  Receive Date: 20151029
  Receipt Date: 20151029
  Transmission Date: 20160304
  Serious: No
  Sender: FDA-Public Use
  Company Number: US-009507513-1510USA011486

PATIENT
  Age: 39 Year
  Sex: Female

DRUGS (1)
  1. BELSOMRA [Suspect]
     Active Substance: SUVOREXANT
     Indication: INSOMNIA
     Dosage: 10 MG, ONE TIME
     Route: 048

REACTIONS (3)
  - Hyperhidrosis [Unknown]
  - Cataplexy [Recovered/Resolved]
  - Abnormal dreams [Unknown]
